FAERS Safety Report 5671220-3 (Version None)
Quarter: 2008Q1

REPORT INFORMATION
  Report Type: 
  Country: None (occurrence: None)
  Receive Date: 20080317
  Receipt Date: 20080317
  Transmission Date: 20080703
  Serious: No
  Sender: FDA-Public Use
  Company Number: None

PATIENT
  Age: 70 Year
  Sex: Female
  Weight: 102.9665 kg

DRUGS (3)
  1. COZAAR [Suspect]
     Indication: BLOOD PRESSURE
     Dosage: 1-2XDAILY
  2. COZAAR [Suspect]
     Indication: DIABETES MELLITUS
     Dosage: 1-2XDAILY
  3. LORTAB [Suspect]
     Indication: PAIN
     Dosage: 4 TO 6 HRS AS NEEDED

REACTIONS (3)
  - PURPURA [None]
  - RASH [None]
  - URTICARIA [None]
